FAERS Safety Report 6400946-9 (Version None)
Quarter: 2009Q4

REPORT INFORMATION
  Report Type: 
  Country: None (occurrence: None)
  Receive Date: 20091009
  Receipt Date: 20091007
  Transmission Date: 20100525
  Serious: Yes (Hospitalization)
  Sender: FDA-Public Use
  Company Number: SPV1-2009-0185

PATIENT
  Age: 47 Year
  Sex: Female
  Weight: 81.6 kg

DRUGS (9)
  1. FOSRENOL [Suspect]
     Indication: HYPERPHOSPHATAEMIA
     Dosage: 2000 MG, 3X/DAY:TID, ORAL
     Route: 048
     Dates: start: 20090101
  2. CRESTOR [Concomitant]
  3. GABAPENTIN [Concomitant]
  4. LANTUS [Concomitant]
  5. HUMALOG /00030501/ (INSULIN) [Concomitant]
  6. COREG [Concomitant]
  7. PROZAC [Concomitant]
  8. CARVEDILOL [Concomitant]
  9. VIVELLE /000445401/ (ESTRADIOL) [Concomitant]

REACTIONS (2)
  - CONDITION AGGRAVATED [None]
  - DIABETIC GASTROPARESIS [None]
